FAERS Safety Report 16539654 (Version 8)
Quarter: 2024Q1

REPORT INFORMATION
  Report Type: Report from Study
  Country: US (occurrence: US)
  Receive Date: 20190708
  Receipt Date: 20240226
  Transmission Date: 20240410
  Serious: Yes (Hospitalization, Other)
  Sender: FDA-Public Use
  Company Number: US-SHIRE-US201921569

PATIENT
  Sex: Male
  Weight: 66 kg

DRUGS (12)
  1. VELAGLUCERASE ALFA [Suspect]
     Active Substance: VELAGLUCERASE ALFA
     Indication: Gaucher^s disease
     Dosage: 4000 INTERNATIONAL UNIT, Q2WEEKS
     Route: 042
     Dates: start: 20110624
  2. VELAGLUCERASE ALFA [Suspect]
     Active Substance: VELAGLUCERASE ALFA
     Indication: Lipidosis
     Dosage: 4000 INTERNATIONAL UNIT, Q2WEEKS
     Route: 042
     Dates: start: 20110625
  3. VELAGLUCERASE ALFA [Suspect]
     Active Substance: VELAGLUCERASE ALFA
     Dosage: UNK UNK, Q2WEEKS
     Route: 065
  4. VELAGLUCERASE ALFA [Suspect]
     Active Substance: VELAGLUCERASE ALFA
     Dosage: 4000 INTERNATIONAL UNIT, Q2WEEKS
     Route: 042
  5. HYDROCODONE [Concomitant]
     Active Substance: HYDROCODONE
     Indication: Pain in extremity
     Dosage: UNK
     Route: 065
  6. IBUPROFEN [Concomitant]
     Active Substance: IBUPROFEN
     Dosage: UNK
     Route: 065
  7. SODIUM CHLORIDE [Concomitant]
     Active Substance: SODIUM CHLORIDE
     Dosage: UNK
     Route: 065
  8. EPINEPHRINE [Concomitant]
     Active Substance: EPINEPHRINE
     Dosage: UNK
     Route: 065
  9. VITAMIN C [Concomitant]
     Active Substance: ASCORBIC ACID
     Dosage: UNK
     Route: 065
  10. Echinacea + goldenseal [Concomitant]
     Dosage: UNK
     Route: 065
  11. NORVASC [Concomitant]
     Active Substance: AMLODIPINE BESYLATE
     Dosage: UNK
     Route: 065
  12. STERILE WATER FOR INJECTION [Concomitant]
     Active Substance: WATER
     Dosage: UNK
     Route: 065

REACTIONS (6)
  - Hand fracture [Not Recovered/Not Resolved]
  - Insurance issue [Unknown]
  - Nasopharyngitis [Unknown]
  - Illness [Unknown]
  - Oropharyngeal pain [Unknown]
  - Product dose omission issue [Unknown]
